FAERS Safety Report 16669502 (Version 1)
Quarter: 2019Q3

REPORT INFORMATION
  Report Type: Spontaneous
  Country: US (occurrence: US)
  Receive Date: 20190805
  Receipt Date: 20190805
  Transmission Date: 20191004
  Serious: Yes (Hospitalization, Disabling)
  Sender: FDA-Public Use
  Company Number: None

PATIENT
  Age: 36 Year
  Sex: Female
  Weight: 71.1 kg

DRUGS (1)
  1. CIPRODEX [Suspect]
     Active Substance: CIPROFLOXACIN HYDROCHLORIDE\DEXAMETHASONE
     Indication: EAR INFECTION
     Dosage: ?          QUANTITY:4 DROP(S);?
     Route: 001
     Dates: start: 20190517, end: 20190531

REACTIONS (7)
  - Nervous system disorder [None]
  - Chest discomfort [None]
  - Muscle tightness [None]
  - Paraesthesia [None]
  - Burning sensation [None]
  - Hypoaesthesia [None]
  - Ear pain [None]

NARRATIVE: CASE EVENT DATE: 20190517
